FAERS Safety Report 4501016-7 (Version None)
Quarter: 2004Q4

REPORT INFORMATION
  Report Type: 
  Country: None (occurrence: None)
  Receive Date: 20041115
  Receipt Date: 20041102
  Transmission Date: 20050328
  Serious: Yes (Hospitalization)
  Sender: FDA-Public Use
  Company Number: CH-GLAXOSMITHKLINE-B0351268A

PATIENT
  Age: 54 Year
  Sex: Female
  Weight: 59 kg

DRUGS (1)
  1. AUGMENTIN '125' [Suspect]
     Indication: TOOTH INFECTION
     Route: 048
     Dates: start: 20040820, end: 20040826

REACTIONS (15)
  - ASTHENIA [None]
  - BRONCHITIS CHRONIC [None]
  - CARDIAC DISORDER [None]
  - CONJUNCTIVITIS [None]
  - DECREASED APPETITE [None]
  - FATIGUE [None]
  - HEPATOCELLULAR DAMAGE [None]
  - HEPATOMEGALY [None]
  - HEPATOTOXICITY [None]
  - JAUNDICE CHOLESTATIC [None]
  - MACROCYTOSIS [None]
  - NAUSEA [None]
  - PALMAR ERYTHEMA [None]
  - TELANGIECTASIA [None]
  - VOMITING [None]
